FAERS Safety Report 9256979 (Version 1)
Quarter: 2013Q2

REPORT INFORMATION
  Report Type: Spontaneous
  Country: US (occurrence: None)
  Receive Date: 20130424
  Receipt Date: 20130424
  Transmission Date: 20140414
  Serious: Yes (Death)
  Sender: FDA-Public Use
  Company Number: None

PATIENT
  Age: 64 Year
  Sex: Male
  Weight: 105.7 kg

DRUGS (2)
  1. PEGINTERFERON [Suspect]
     Indication: HEPATITIS C
     Dates: start: 20120709, end: 20121109
  2. RIBAVIRIN [Suspect]
     Route: 048
     Dates: start: 20120707, end: 20121109

REACTIONS (2)
  - Respiratory failure [None]
  - Idiopathic pulmonary fibrosis [None]
